FAERS Safety Report 7629837-2 (Version None)
Quarter: 2011Q3

REPORT INFORMATION
  Report Type: 
  Country: None (occurrence: None)
  Receive Date: 20110722
  Receipt Date: 20110712
  Transmission Date: 20111222
  Serious: Yes (Other)
  Sender: FDA-Public Use
  Company Number: CA-JNJFOC-20110706328

PATIENT
  Sex: Female
  Weight: 79 kg

DRUGS (13)
  1. THYROID TAB [Concomitant]
     Route: 042
  2. CALCIUM/MAGNESIUM [Concomitant]
  3. REMICADE [Suspect]
     Indication: ANKYLOSING SPONDYLITIS
     Route: 042
     Dates: start: 20100803
  4. METHOTREXATE [Suspect]
     Indication: PRODUCT USED FOR UNKNOWN INDICATION
  5. VITAMIN D [Concomitant]
  6. DIFFERIN [Concomitant]
  7. SYMBICORT [Concomitant]
  8. VITAMIN B-12 [Concomitant]
     Route: 030
  9. DOVOBET [Concomitant]
  10. CELEBREX [Concomitant]
  11. MS CONTIN [Concomitant]
  12. RATIO-TRIACOMB 1% [Concomitant]
  13. CLINDASOL [Concomitant]

REACTIONS (3)
  - PAIN [None]
  - DYSPNOEA [None]
  - PULMONARY CONGESTION [None]
